FAERS Safety Report 16831375 (Version 1)
Quarter: 2019Q3

REPORT INFORMATION
  Report Type: Spontaneous
  Country: US (occurrence: US)
  Receive Date: 20190920
  Receipt Date: 20190920
  Transmission Date: 20191005
  Serious: Yes (Other)
  Sender: FDA-Public Use
  Company Number: US-ZYDUS-040750

PATIENT
  Sex: Female

DRUGS (1)
  1. WARFARIN [Suspect]
     Active Substance: WARFARIN
     Indication: PULMONARY EMBOLISM
     Route: 065

REACTIONS (7)
  - Skin mass [Unknown]
  - Pain [Unknown]
  - Eschar [Unknown]
  - Skin plaque [Unknown]
  - Ulcer [Unknown]
  - Fat necrosis [Unknown]
  - Calciphylaxis [Unknown]
